FAERS Safety Report 23158016 (Version 1)
Quarter: 2023Q4

REPORT INFORMATION
  Report Type: Spontaneous
  Country: US (occurrence: US)
  Receive Date: 20231108
  Receipt Date: 20231108
  Transmission Date: 20240109
  Serious: No
  Sender: FDA-Public Use
  Company Number: US-002147023-NVSC2023US236919

PATIENT
  Sex: Female

DRUGS (1)
  1. PROMACTA [Suspect]
     Active Substance: ELTROMBOPAG OLAMINE
     Indication: Immune thrombocytopenia
     Dosage: 25 MG TAKE 1 TABLET BY MOUTH DAILY ON MONDAY TO FRIDAY
     Route: 048
     Dates: start: 202208

REACTIONS (3)
  - Sneezing [Unknown]
  - Throat irritation [Unknown]
  - Rhinorrhoea [Unknown]
